FAERS Safety Report 14629810 (Version 5)
Quarter: 2018Q3

REPORT INFORMATION
  Report Type: Report from Study
  Country: DE (occurrence: DE)
  Receive Date: 20180313
  Receipt Date: 20180920
  Transmission Date: 20181010
  Serious: No
  Sender: FDA-Public Use
  Company Number: DE-ROCHE-2087412

PATIENT
  Age: 43 Year
  Sex: Female

DRUGS (3)
  1. L?THYROXIN [Concomitant]
     Active Substance: LEVOTHYROXINE SODIUM
     Route: 065
  2. VITAMIN D3 [Concomitant]
     Active Substance: CHOLECALCIFEROL
     Route: 065
  3. OCREVUS [Suspect]
     Active Substance: OCRELIZUMAB
     Indication: RELAPSING MULTIPLE SCLEROSIS
     Route: 042
     Dates: start: 20180228

REACTIONS (9)
  - Hair colour changes [Not Recovered/Not Resolved]
  - Sleep disorder [Unknown]
  - Cough [Recovering/Resolving]
  - Palpitations [Recovered/Resolved]
  - Hypotension [Unknown]
  - Fatigue [Recovered/Resolved]
  - Hypotonia [Recovered/Resolved]
  - Nasopharyngitis [Recovered/Resolved]
  - Arthralgia [Recovered/Resolved]

NARRATIVE: CASE EVENT DATE: 20180228
